FAERS Safety Report 20586271 (Version 1)
Quarter: 2022Q1

REPORT INFORMATION
  Report Type: Spontaneous
  Country: TW (occurrence: TW)
  Receive Date: 20220313
  Receipt Date: 20220313
  Transmission Date: 20220423
  Serious: Yes (Hospitalization)
  Sender: FDA-Public Use
  Company Number: TW-BEXIMCO-2022BEX00016

PATIENT
  Age: 56 Year
  Sex: Female

DRUGS (6)
  1. METFORMIN HYDROCHLORIDE [Suspect]
     Active Substance: METFORMIN HYDROCHLORIDE
     Dosage: 1000 MG, 1X/DAY
     Route: 065
  2. VALSARTAN [Concomitant]
     Active Substance: VALSARTAN
     Dosage: 160 MG
     Route: 065
  3. CARVEDILOL [Concomitant]
     Active Substance: CARVEDILOL
     Dosage: 25 MG
     Route: 065
  4. AMLODIPINE [Concomitant]
     Active Substance: AMLODIPINE BESYLATE
     Dosage: 5 MG
     Route: 065
  5. LINAGLIPTIN [Concomitant]
     Active Substance: LINAGLIPTIN
     Dosage: 5 MG
     Route: 065
  6. PITAVASTATIN [Concomitant]
     Active Substance: PITAVASTATIN
     Dosage: 4 MG
     Route: 065

REACTIONS (3)
  - Toxic encephalopathy [Recovered/Resolved]
  - Metabolic acidosis [Recovered/Resolved]
  - Contraindicated product administered [Recovered/Resolved]
